FAERS Safety Report 7719526-8 (Version None)
Quarter: 2011Q3

REPORT INFORMATION
  Report Type: 
  Country: None (occurrence: None)
  Receive Date: 20110830
  Receipt Date: 20110824
  Transmission Date: 20111222
  Serious: Yes (Hospitalization, Other)
  Sender: FDA-Public Use
  Company Number: PHHY2011FR49349

PATIENT
  Sex: Male

DRUGS (9)
  1. VANCOMYCIN HCL [Suspect]
     Dosage: 1 G, DAILY
     Route: 042
     Dates: start: 20110519
  2. ZYVOX [Suspect]
  3. VANCOMYCIN HCL [Suspect]
     Dosage: 2 G, DAILY
     Route: 042
     Dates: end: 20110510
  4. GENTAMICIN [Suspect]
  5. VANCOMYCIN HCL [Suspect]
     Dosage: 1.5 G, DAILY
     Route: 042
     Dates: start: 20110507, end: 20110509
  6. VANCOMYCIN HCL [Suspect]
     Dosage: 2.2 G, DAILY
     Route: 042
     Dates: start: 20110516, end: 20110517
  7. RIFAMPICIN [Suspect]
  8. VANCOMYCIN HCL [Suspect]
     Dosage: 1.5 G, DAILY
     Route: 042
     Dates: start: 20110517, end: 20110518
  9. VANCOMYCIN HCL [Suspect]
     Dosage: 3 G, DAILY
     Route: 042
     Dates: start: 20110510, end: 20110516

REACTIONS (4)
  - RENAL FAILURE [None]
  - TUBULOINTERSTITIAL NEPHRITIS [None]
  - TOXIC SKIN ERUPTION [None]
  - SEPTIC SHOCK [None]
